FAERS Safety Report 7677354-6 (Version None)
Quarter: 2011Q3

REPORT INFORMATION
  Report Type: 
  Country: None (occurrence: None)
  Receive Date: 20110811
  Receipt Date: 20110729
  Transmission Date: 20111222
  Serious: Yes (Other)
  Sender: FDA-Public Use
  Company Number: CA-ELI_LILLY_AND_COMPANY-CA201107008003

PATIENT
  Sex: Male

DRUGS (7)
  1. ZYPREXA [Suspect]
     Dosage: 10 MG, BID
  2. RISPERIDONE [Concomitant]
  3. ZYPREXA [Suspect]
     Indication: SCHIZOPHRENIA
     Dosage: 15 MG, QD
  4. MULTI-VITAMIN [Concomitant]
  5. ZYPREXA [Suspect]
     Dosage: 7.5 MG, QD
  6. SERTRALINE HYDROCHLORIDE [Concomitant]
  7. ATIVAN [Concomitant]

REACTIONS (9)
  - ALANINE AMINOTRANSFERASE INCREASED [None]
  - HYPERCHOLESTEROLAEMIA [None]
  - BLOOD TRIGLYCERIDES INCREASED [None]
  - GASTROENTERITIS [None]
  - RASH PRURITIC [None]
  - WEIGHT INCREASED [None]
  - DIABETES MELLITUS [None]
  - RECTAL HAEMORRHAGE [None]
  - CHEST PAIN [None]
